FAERS Safety Report 6569738-4 (Version None)
Quarter: 2010Q1

REPORT INFORMATION
  Report Type: 
  Country: None (occurrence: None)
  Receive Date: 20100202
  Receipt Date: 20100202
  Transmission Date: 20100710
  Serious: Yes (Hospitalization)
  Sender: FDA-Public Use
  Company Number: None

PATIENT
  Sex: Male
  Weight: 92.5 kg

DRUGS (7)
  1. AZACITIDINE [Suspect]
     Indication: ACUTE MYELOID LEUKAEMIA
     Dosage: AZACITIDINE 75 MG/M2 QD IV
     Route: 042
  2. REVLEMID [Suspect]
     Indication: ACUTE MYELOID LEUKAEMIA
     Dosage: REVLEMID 10 MG QD PO
     Route: 048
  3. ZOLOFT [Concomitant]
  4. LIPITOR [Concomitant]
  5. ZOFRAN [Concomitant]
  6. PROCHLORPERAZINE (COMPAZINE) [Concomitant]
  7. ATIVAN [Concomitant]

REACTIONS (8)
  - ASTHENIA [None]
  - DIZZINESS [None]
  - EXTRASYSTOLES [None]
  - FALL [None]
  - FATIGUE [None]
  - FEELING ABNORMAL [None]
  - PRESYNCOPE [None]
  - SINUS BRADYCARDIA [None]
